FAERS Safety Report 25713609 (Version 1)
Quarter: 2025Q3

REPORT INFORMATION
  Report Type: Spontaneous
  Country: EU (occurrence: EU)
  Receive Date: 20250822
  Receipt Date: 20250822
  Transmission Date: 20251020
  Serious: Yes (Hospitalization)
  Sender: VELOXIS PHARMACEUTICALS
  Company Number: EU-CHIESI-2025CHF05701

PATIENT
  Age: 45 Year
  Sex: Female

DRUGS (3)
  1. TACROLIMUS [Interacting]
     Active Substance: TACROLIMUS
     Indication: Product used for unknown indication
     Route: 065
  2. FOSFOMYCIN TROMETHAMINE [Interacting]
     Active Substance: FOSFOMYCIN TROMETHAMINE
     Indication: Prophylaxis urinary tract infection
     Route: 065
  3. FOSFOMYCIN TROMETHAMINE [Interacting]
     Active Substance: FOSFOMYCIN TROMETHAMINE
     Indication: Infection prophylaxis

REACTIONS (6)
  - Renal tubular acidosis [Recovered/Resolved]
  - Immunosuppressant drug level increased [Recovered/Resolved]
  - Drug interaction [Recovered/Resolved]
  - Off label use [Recovered/Resolved]
  - Resting tremor [Recovered/Resolved]
  - Intention tremor [Recovered/Resolved]
